FAERS Safety Report 7999618-9 (Version None)
Quarter: 2011Q4

REPORT INFORMATION
  Report Type: 
  Country: None (occurrence: None)
  Receive Date: 20111221
  Receipt Date: 20111207
  Transmission Date: 20120403
  Serious: Yes (Other)
  Sender: FDA-Public Use
  Company Number: FR-PFIZER INC-2011309131

PATIENT
  Age: 60 Year
  Sex: Female

DRUGS (5)
  1. PROZAC [Suspect]
     Indication: DEPRESSION
     Dosage: 20 MILLIGRAM(S);DAILY
     Route: 048
     Dates: start: 20111020, end: 20111106
  2. ACETAMINOPHEN AND CODEINE PHOSPHATE [Concomitant]
     Dosage: UNK
     Dates: start: 20100101
  3. OXAZEPAM [Concomitant]
     Dosage: UNK
     Dates: start: 20110901
  4. RAMIPRIL [Suspect]
     Indication: HYPERTENSION
     Dosage: 2.5 MILLIGRAM(S), DAILY
     Route: 048
     Dates: start: 20110901, end: 20111107
  5. IMOVANE [Concomitant]
     Dosage: UNK
     Dates: start: 20111001

REACTIONS (3)
  - OESOPHAGEAL DISCOMFORT [None]
  - ANGIOEDEMA [None]
  - SWOLLEN TONGUE [None]
